FAERS Safety Report 6902441-7 (Version None)
Quarter: 2010Q3

REPORT INFORMATION
  Report Type: 
  Country: None (occurrence: None)
  Receive Date: 20100803
  Receipt Date: 20080528
  Transmission Date: 20110219
  Serious: No
  Sender: FDA-Public Use
  Company Number: US-PFIZER INC-2008045889

PATIENT
  Sex: Male
  Weight: 81.8 kg

DRUGS (4)
  1. LYRICA [Suspect]
     Indication: FIBROMYALGIA
     Dates: start: 20080101
  2. DRUG, UNSPECIFIED [Suspect]
  3. DRUG, UNSPECIFIED [Suspect]
  4. ALL OTHER THERAPEUTIC PRODUCTS [Concomitant]

REACTIONS (4)
  - ABDOMINAL PAIN UPPER [None]
  - DIARRHOEA [None]
  - MALAISE [None]
  - NAUSEA [None]
